FAERS Safety Report 8962192 (Version 2)
Quarter: 2013Q1

REPORT INFORMATION
  Report Type: Spontaneous
  Country: US (occurrence: US)
  Receive Date: 20121212
  Receipt Date: 20130128
  Transmission Date: 20140127
  Serious: Yes (Death)
  Sender: FDA-Public Use
  Company Number: US-PFIZER INC-2012311537

PATIENT
  Age: 60 Year
  Sex: Male

DRUGS (4)
  1. SUTENT [Suspect]
     Indication: RENAL CANCER
     Dosage: 50 MG, 1X/DAY
     Route: 048
     Dates: start: 20111222, end: 20120328
  2. ATENOLOL [Concomitant]
     Indication: HYPERTENSION
     Dosage: UNK
     Dates: start: 20100910
  3. BENICAR [Concomitant]
     Indication: HYPERTENSION
     Dosage: UNK
     Dates: start: 20100922
  4. HYDROCHLOROTHIAZIDE [Concomitant]
     Indication: HYPERTENSION
     Dosage: UNK
     Dates: start: 20100901

REACTIONS (3)
  - Disease progression [Fatal]
  - Renal cancer [Fatal]
  - Nasal septum perforation [Not Recovered/Not Resolved]
